FAERS Safety Report 18645396 (Version 3)
Quarter: 2021Q1

REPORT INFORMATION
  Report Type: Spontaneous
  Country: KR (occurrence: KR)
  Receive Date: 20201221
  Receipt Date: 20210204
  Transmission Date: 20210419
  Serious: Yes (Death, Other)
  Sender: FDA-Public Use
  Company Number: KR-GILEAD-2020-0509902

PATIENT
  Age: 91 Year
  Sex: Female
  Weight: 50 kg

DRUGS (17)
  1. MACPERAN [Concomitant]
     Active Substance: METOCLOPRAMIDE HYDROCHLORIDE
     Indication: VOMITING
  2. DEXAMETHASONE. [Concomitant]
     Active Substance: DEXAMETHASONE
  3. TRIDOL [Concomitant]
     Active Substance: TRAMADOL HYDROCHLORIDE
     Indication: PAIN
  4. COOL PAP JEIL [DICLOFENAC DIETHYLAMINE] [Concomitant]
     Indication: ARTHRALGIA
  5. BEARSE [Concomitant]
     Active Substance: DIMETHICONE\PANCRELIPASE\URSODIOL
     Indication: DYSPEPSIA
  6. VEKLURY [Suspect]
     Active Substance: REMDESIVIR
     Indication: COVID-19
     Dosage: 100 MG, UNK
     Route: 042
     Dates: start: 20201216, end: 20201217
  7. BISACODYL. [Concomitant]
     Active Substance: BISACODYL
  8. CODAEWON FORTE [Concomitant]
     Indication: COUGH
  9. JW LEVOFLOXACIN [Concomitant]
  10. VASELINE [PARAFFIN SOFT] [Concomitant]
     Indication: LIP DRY
  11. NEOMEDICOUGH [Concomitant]
     Indication: COUGH
  12. TRIDOL [Concomitant]
     Active Substance: TRAMADOL HYDROCHLORIDE
     Indication: PYREXIA
  13. SMOFKABIVEN [Concomitant]
     Active Substance: AMINO ACIDS\DEXTROSE\ELECTROLYTES NOS\SOYBEAN OIL
  14. PANTOLINE [Concomitant]
     Active Substance: PANTOPRAZOLE SODIUM
  15. PLAKON [Concomitant]
     Indication: PRURITUS
  16. RINOEBASTEL [Concomitant]
     Indication: RHINORRHOEA
  17. TYLENOL [Concomitant]
     Active Substance: ACETAMINOPHEN
     Indication: HEADACHE

REACTIONS (2)
  - COVID-19 pneumonia [Unknown]
  - Pneumonia [Fatal]

NARRATIVE: CASE EVENT DATE: 20201216
